FAERS Safety Report 20351708 (Version 1)
Quarter: 2022Q1

REPORT INFORMATION
  Report Type: Spontaneous
  Country: US (occurrence: US)
  Receive Date: 20220119
  Receipt Date: 20220119
  Transmission Date: 20220423
  Serious: Yes (Other)
  Sender: FDA-Public Use
  Company Number: US-ALLERGAN-2202291US

PATIENT
  Sex: Female

DRUGS (1)
  1. LILETTA [Suspect]
     Active Substance: LEVONORGESTREL
     Indication: Contraception
     Dosage: 52 MG, SINGLE
     Route: 015
     Dates: start: 20190713, end: 20190807

REACTIONS (3)
  - Abortion spontaneous [Unknown]
  - Pregnancy [Unknown]
  - Drug ineffective [Unknown]

NARRATIVE: CASE EVENT DATE: 20190101
